FAERS Safety Report 8895001 (Version 1)
Quarter: 2012Q4

REPORT INFORMATION
  Report Type: 
  Country: US (occurrence: US)
  Receive Date: 20121107
  Receipt Date: 20121107
  Transmission Date: 20130627
  Serious: No
  Sender: FDA-Public Use
  Company Number: US-AMGEN-USASP2011049431

PATIENT
  Sex: Male
  Weight: 113 kg

DRUGS (13)
  1. ENBREL [Suspect]
     Indication: PRODUCT USED FOR UNKNOWN INDICATION
     Dosage: 50 mg, qwk
     Route: 058
  2. CYMBALTA [Concomitant]
     Dosage: 20 mg, UNK
  3. CELEBREX [Concomitant]
     Dosage: 100 mg, UNK
  4. ANASTROZOLE [Concomitant]
     Dosage: 1 mg, UNK
  5. NIASPAN [Concomitant]
     Dosage: 500 mg, UNK
  6. DIOVAN [Concomitant]
     Dosage: 320 mg, UNK
  7. ASPIRIN [Concomitant]
     Dosage: 81 mg, UNK
  8. OMEPRAZOLE [Concomitant]
     Dosage: 20 mg, UNK
  9. HYDROCODONE W/PARACETAMOL [Concomitant]
     Dosage: UNK
  10. METOPROLOL [Concomitant]
     Dosage: 25 mg, UNK
  11. DICLOFENAC [Concomitant]
     Dosage: 75 mg, UNK
  12. VITAMIN B12 [Concomitant]
     Dosage: 100 mug, UNK
  13. ALPRAZOLAM [Concomitant]
     Dosage: 3 mg, UNK

REACTIONS (2)
  - Oral pain [Unknown]
  - Dry mouth [Unknown]
